FAERS Safety Report 5704399-5 (Version None)
Quarter: 2008Q2

REPORT INFORMATION
  Report Type: 
  Country: None (occurrence: None)
  Receive Date: 20080414
  Receipt Date: 20080404
  Transmission Date: 20081010
  Serious: Yes (Hospitalization)
  Sender: FDA-Public Use
  Company Number: B0504889B

PATIENT
  Age: 62 Year
  Sex: Female
  Weight: 73 kg

DRUGS (2)
  1. LAPATINIB [Suspect]
     Dosage: 1250MG PER DAY
     Dates: start: 20070817
  2. CAPECITABINE [Suspect]
     Dosage: 2000MGM2 PER DAY
     Route: 048
     Dates: start: 20070817

REACTIONS (2)
  - PNEUMONIA [None]
  - PULMONARY EMBOLISM [None]
